FAERS Safety Report 5368723-8 (Version None)
Quarter: 2007Q2

REPORT INFORMATION
  Report Type: 
  Country: None (occurrence: None)
  Receive Date: 20070625
  Receipt Date: 20070430
  Transmission Date: 20071010
  Serious: No
  Sender: FDA-Public Use
  Company Number: US-BRISTOL-MYERS SQUIBB COMPANY-13764279

PATIENT
  Sex: Female
  Weight: 40 kg

DRUGS (5)
  1. ORENCIA [Suspect]
     Route: 042
  2. METHOTREXATE [Concomitant]
  3. MOBIC [Concomitant]
  4. ULTRACET [Concomitant]
  5. CIPRO [Concomitant]

REACTIONS (5)
  - CHEST PAIN [None]
  - DRUG INEFFECTIVE [None]
  - FATIGUE [None]
  - PAIN [None]
  - URINARY TRACT INFECTION [None]
